FAERS Safety Report 13193596 (Version 2)
Quarter: 2017Q2

REPORT INFORMATION
  Report Type: Spontaneous
  Country: US (occurrence: US)
  Receive Date: 20170207
  Receipt Date: 20170505
  Transmission Date: 20170830
  Serious: No
  Sender: FDA-Public Use
  Company Number: US-TEVA-731807ACC

PATIENT
  Age: 30 Year
  Sex: Female
  Weight: 101.24 kg

DRUGS (1)
  1. PARAGARD T 380A [Suspect]
     Active Substance: COPPER
     Indication: CONTRACEPTION
     Dates: start: 20161103

REACTIONS (2)
  - Device expulsion [Recovered/Resolved with Sequelae]
  - Muscle spasms [Unknown]

NARRATIVE: CASE EVENT DATE: 20170104
